FAERS Safety Report 8163759-6 (Version None)
Quarter: 2012Q1

REPORT INFORMATION
  Report Type: 
  Country: None (occurrence: None)
  Receive Date: 20120224
  Receipt Date: 20120218
  Transmission Date: 20120608
  Serious: Yes (Other)
  Sender: FDA-Public Use
  Company Number: PHHY2012MX014920

PATIENT
  Sex: Female

DRUGS (1)
  1. DIOVAN HCT [Suspect]
     Indication: HYPERTENSION
     Dosage: ONE TABLET (80/12.5 MG) DAILY
     Dates: start: 20080101

REACTIONS (5)
  - VISUAL IMPAIRMENT [None]
  - EYE PAIN [None]
  - HEADACHE [None]
  - EYE SWELLING [None]
  - GLAUCOMA [None]
